FAERS Safety Report 10423627 (Version 10)
Quarter: 2014Q4

REPORT INFORMATION
  Report Type: Report from Study
  Country: FR (occurrence: FR)
  Receive Date: 20140902
  Receipt Date: 20141028
  Transmission Date: 20150528
  Serious: Yes (Life-Threatening, Hospitalization)
  Sender: FDA-Public Use
  Company Number: FR-ROCHE-1436053

PATIENT
  Age: 65 Year
  Sex: Female
  Weight: 53 kg

DRUGS (12)
  1. BEVACIZUMAB [Suspect]
     Active Substance: BEVACIZUMAB
     Indication: GLIOBLASTOMA
     Dosage: DATE OF LAST DOSE PRIOR TO ABDOMINAL PAIN AND INTESTINAL PERFORATION WAS ON 25/JUL/2014. BEVACIZUMAB
     Route: 042
     Dates: start: 20140611
  2. KEPPRA [Concomitant]
     Active Substance: LEVETIRACETAM
     Route: 065
     Dates: start: 20140416
  3. SOLUPRED (FRANCE) [Concomitant]
     Active Substance: PREDNISOLONE
     Route: 065
     Dates: start: 20140602
  4. ZYPREXA [Concomitant]
     Active Substance: OLANZAPINE
     Route: 065
     Dates: start: 20140716, end: 20140728
  5. TEMOZOLOMIDE. [Suspect]
     Active Substance: TEMOZOLOMIDE
     Indication: GLIOBLASTOMA
     Dosage: DATE OF LAST DOSE PRIOR TO AE 12/JUL/2014.?DATE OF LAST DOSE PRIOR TO EVENT ABDOMINAL PAIN AND INTES
     Route: 048
     Dates: start: 20140611
  6. VOGALENE [Concomitant]
     Active Substance: METOPIMAZINE
     Dosage: PRN
     Route: 065
     Dates: start: 20140716, end: 20140728
  7. LOXEN (FRANCE) [Concomitant]
     Active Substance: NICARDIPINE HYDROCHLORIDE
     Route: 065
     Dates: start: 20140722, end: 20140728
  8. ZOLPIDEM [Concomitant]
     Active Substance: ZOLPIDEM\ZOLPIDEM TARTRATE
     Route: 065
     Dates: start: 2014, end: 20140728
  9. INEXIUM [Concomitant]
     Active Substance: ESOMEPRAZOLE
     Route: 065
     Dates: start: 20140507
  10. KALEORID [Concomitant]
     Active Substance: POTASSIUM CHLORIDE
     Route: 065
     Dates: start: 20140726, end: 20140728
  11. DUPHALAC [Concomitant]
     Active Substance: LACTULOSE
     Dosage: PRN
     Route: 065
     Dates: start: 20140716
  12. RENUTRYL [Concomitant]
     Dosage: BOOSTER
     Route: 065
     Dates: start: 20140726

REACTIONS (4)
  - Intestinal perforation [Recovered/Resolved with Sequelae]
  - Multi-organ failure [Recovered/Resolved with Sequelae]
  - Sepsis [Not Recovered/Not Resolved]
  - Vomiting [Recovered/Resolved]

NARRATIVE: CASE EVENT DATE: 20140710
